FAERS Safety Report 13683958 (Version 1)
Quarter: 2017Q2

REPORT INFORMATION
  Report Type: Spontaneous
  Country: US (occurrence: US)
  Receive Date: 20170623
  Receipt Date: 20170623
  Transmission Date: 20170830
  Serious: No
  Sender: FDA-Public Use
  Company Number: US-ASTELLAS-2017US002338

PATIENT
  Age: 84 Year
  Sex: Female

DRUGS (1)
  1. VESICARE [Suspect]
     Active Substance: SOLIFENACIN SUCCINATE
     Indication: MICTURITION URGENCY
     Dosage: 5 MG, ONCE DAILY (AS NEEDED)
     Route: 048

REACTIONS (3)
  - Treatment noncompliance [Unknown]
  - Pruritus generalised [Not Recovered/Not Resolved]
  - Paraesthesia [Not Recovered/Not Resolved]
